FAERS Safety Report 6680369-8 (Version None)
Quarter: 2010Q2

REPORT INFORMATION
  Report Type: 
  Country: None (occurrence: None)
  Receive Date: 20100412
  Receipt Date: 20100331
  Transmission Date: 20101027
  Serious: Yes (Hospitalization)
  Sender: FDA-Public Use
  Company Number: 1000012495

PATIENT
  Age: 34 Year
  Weight: 64 kg

DRUGS (2)
  1. PROPRANOLOL HCL [Suspect]
     Dosage: ONCE
  2. KLONOPIN [Suspect]
     Dosage: ONCE

REACTIONS (10)
  - BRADYCARDIA [None]
  - BRUGADA SYNDROME [None]
  - BUNDLE BRANCH BLOCK RIGHT [None]
  - DRUG LEVEL INCREASED [None]
  - DRUG SCREEN POSITIVE [None]
  - DRUG TOXICITY [None]
  - ELECTROCARDIOGRAM QRS COMPLEX PROLONGED [None]
  - HYPOTENSION [None]
  - HYPOVENTILATION [None]
  - UNRESPONSIVE TO STIMULI [None]
